FAERS Safety Report 5671624-9 (Version None)
Quarter: 2008Q1

REPORT INFORMATION
  Report Type: 
  Country: None (occurrence: None)
  Receive Date: 20080313
  Receipt Date: 20080229
  Transmission Date: 20080703
  Serious: Yes (Hospitalization)
  Sender: FDA-Public Use
  Company Number: GXKR2008GB02208

PATIENT
  Age: 65 Year
  Sex: Female
  Weight: 115 kg

DRUGS (15)
  1. METHYLENE BLUE (NGX)(METHYLENE BLUE) UNKNOWN [Suspect]
     Dosage: 200 MG, INTRAVENOUS
     Route: 042
  2. PAROXETINE HCL [Suspect]
  3. RAMIPRIL [Concomitant]
  4. INSULIN HUMAN (INSULIN HUMAN) [Concomitant]
  5. METFORMIN HCL [Concomitant]
  6. ATENOLOL [Concomitant]
  7. ACETYLSALICYLIC ACID SRT [Concomitant]
  8. SIMVASTATIN [Concomitant]
  9. CARBIMAZOLE (CARBIMAZOLE) [Concomitant]
  10. MIDAZOLAM HCL [Concomitant]
  11. FENTANYL [Concomitant]
  12. PROPOFOL [Concomitant]
  13. ROCURONIUM BROMIDE [Concomitant]
  14. NITROUS OXIDE (NITROUS OXIDE), 50% [Concomitant]
  15. ISOFLURANE (ISOFLURANE), 1% [Concomitant]

REACTIONS (8)
  - AGITATION [None]
  - APHASIA [None]
  - CONFUSIONAL STATE [None]
  - DRUG INTERACTION [None]
  - POST PROCEDURAL COMPLICATION [None]
  - RESTLESSNESS [None]
  - SOMNOLENCE [None]
  - UNRESPONSIVE TO STIMULI [None]
